FAERS Safety Report 11205786 (Version 1)
Quarter: 2015Q2

REPORT INFORMATION
  Report Type: Spontaneous
  Country: US (occurrence: None)
  Receive Date: 20150618
  Receipt Date: 20150618
  Transmission Date: 20150821
  Serious: Yes (Hospitalization)
  Sender: FDA-Public Use
  Company Number: None

PATIENT
  Age: 67 Year
  Sex: Female

DRUGS (1)
  1. ENBREL [Suspect]
     Active Substance: ETANERCEPT
     Indication: OSTEOARTHRITIS
     Dates: start: 201501, end: 201504

REACTIONS (5)
  - Fatigue [None]
  - Lethargy [None]
  - Jaundice [None]
  - Hepatic enzyme abnormal [None]
  - Abdominal discomfort [None]

NARRATIVE: CASE EVENT DATE: 20150413
